FAERS Safety Report 25375098 (Version 1)
Quarter: 2025Q2

REPORT INFORMATION
  Report Type: Spontaneous
  Country: US (occurrence: None)
  Receive Date: 20250529
  Receipt Date: 20250529
  Transmission Date: 20250716
  Serious: Yes (Other)
  Sender: FDA-CTU
  Company Number: None

PATIENT
  Age: 77 Year
  Sex: Female

DRUGS (2)
  1. DUPIXENT [Suspect]
     Active Substance: DUPILUMAB
     Indication: Pemphigoid
     Route: 058
     Dates: start: 20250528
  2. DUPIXENT [Concomitant]
     Active Substance: DUPILUMAB
     Dates: start: 20250528

REACTIONS (3)
  - Upper-airway cough syndrome [None]
  - Respiratory tract congestion [None]
  - Burning sensation [None]

NARRATIVE: CASE EVENT DATE: 20250529
